FAERS Safety Report 6522876-4 (Version None)
Quarter: 2009Q4

REPORT INFORMATION
  Report Type: 
  Country: None (occurrence: None)
  Receive Date: 20091222
  Receipt Date: 20091211
  Transmission Date: 20100525
  Serious: Yes (Other)
  Sender: FDA-Public Use
  Company Number: 220010M09GBR

PATIENT
  Age: 55 Year
  Sex: Male

DRUGS (13)
  1. SOMATROPIN (SOMATROPIN) [Suspect]
     Indication: HYPOPITUITARISM
     Dosage: 10 MG, 1 IN 1 WEEKS, SUBCUTANEOUS
     Route: 058
  2. NEBIDO [Suspect]
     Dates: start: 20071001
  3. ATORVASTATIN CALCIUM [Concomitant]
  4. CLOPIDOGREL HYDROGEN SULPHATE (CLOPIDOGREL SULFATE) [Concomitant]
  5. FENOFIBRATE [Concomitant]
  6. MERFORMIN HYDROCHLORIDE (METFORMIN HYDROCHLORIDE) [Concomitant]
  7. MOVELAT (MOVELAT /00479601/) [Concomitant]
  8. NOVOMIX (INSULIN ASPART) [Concomitant]
  9. ROSIGLITAZONE MALEATE [Concomitant]
  10. SALBUTAMOL (SALBUTAMOL /00139501/) [Concomitant]
  11. SERETIDE (SERETIDE) [Concomitant]
  12. VALSARTAN [Concomitant]
  13. VARDENAFIL (VARDENAFIL) [Concomitant]

REACTIONS (4)
  - BLOOD PRESSURE INCREASED [None]
  - BURNING SENSATION [None]
  - DYSGEUSIA [None]
  - HYPERHIDROSIS [None]
